FAERS Safety Report 8371855-3 (Version None)
Quarter: 2012Q2

REPORT INFORMATION
  Report Type: 
  Country: None (occurrence: None)
  Receive Date: 20120518
  Receipt Date: 20120515
  Transmission Date: 20120825
  Serious: Yes (Hospitalization)
  Sender: FDA-Public Use
  Company Number: GB-ROCHE-1069502

PATIENT
  Sex: Female
  Weight: 53 kg

DRUGS (2)
  1. ARAVA [Concomitant]
  2. ACTEMRA [Suspect]
     Indication: RHEUMATOID ARTHRITIS
     Dosage: DATE OF LAST DOSE PRIOR TO SAE: 30/AUG/2011
     Route: 065
     Dates: start: 20110802

REACTIONS (2)
  - HYPOTHYROIDISM [None]
  - ADDISON'S DISEASE [None]
